FAERS Safety Report 7542038-1 (Version None)
Quarter: 2011Q2

REPORT INFORMATION
  Report Type: 
  Country: None (occurrence: None)
  Receive Date: 20110524
  Receipt Date: 20110310
  Transmission Date: 20111010
  Serious: No
  Sender: FDA-Public Use
  Company Number: 029123

PATIENT
  Sex: Female
  Weight: 180 kg

DRUGS (1)
  1. CIMZIA [Suspect]
     Dosage: (400 MG INDUCTION DOSES SUBCUTANEOUS)
     Route: 058
     Dates: start: 20110217

REACTIONS (2)
  - FATIGUE [None]
  - ABDOMINAL PAIN [None]
